FAERS Safety Report 5680595-0 (Version None)
Quarter: 2008Q1

REPORT INFORMATION
  Report Type: 
  Country: None (occurrence: None)
  Receive Date: 20080326
  Receipt Date: 20080320
  Transmission Date: 20080703
  Serious: No
  Sender: FDA-Public Use
  Company Number: US-BAXTER-2008BH002622

PATIENT
  Age: 58 Year
  Sex: Female
  Weight: 81 kg

DRUGS (8)
  1. HEPARIN SODIUM [Suspect]
     Indication: APHERESIS
     Route: 042
     Dates: start: 20070401, end: 20070901
  2. HEPARIN SODIUM [Suspect]
     Route: 042
     Dates: start: 20070930, end: 20080226
  3. SYNTHROID [Concomitant]
     Indication: HYPOTHYROIDISM
     Route: 048
  4. PREDNISONE TAB [Concomitant]
     Indication: GUILLAIN-BARRE SYNDROME
     Route: 048
  5. METFORMIN [Concomitant]
     Indication: DIABETES MELLITUS
     Route: 048
  6. PEPCID AC [Concomitant]
     Indication: DRUG USE FOR UNKNOWN INDICATION
     Route: 048
  7. IRON [Concomitant]
     Indication: MINERAL SUPPLEMENTATION
     Route: 048
  8. CALCIUM WITH VITAMIN D [Concomitant]
     Indication: VITAMIN SUPPLEMENTATION
     Route: 048

REACTIONS (10)
  - BURNING SENSATION [None]
  - CHEST PAIN [None]
  - DIZZINESS [None]
  - FEELING COLD [None]
  - HEART RATE INCREASED [None]
  - HYPERHIDROSIS [None]
  - MYALGIA [None]
  - NAUSEA [None]
  - PHARYNGEAL OEDEMA [None]
  - PYREXIA [None]
